FAERS Safety Report 18751578 (Version 1)
Quarter: 2021Q1

REPORT INFORMATION
  Report Type: Report from Study
  Country: IN (occurrence: IN)
  Receive Date: 20210118
  Receipt Date: 20210118
  Transmission Date: 20210419
  Serious: Yes (Hospitalization)
  Sender: FDA-Public Use
  Company Number: NVSC2021IN007181

PATIENT
  Sex: Female

DRUGS (1)
  1. SCAPHO [Suspect]
     Active Substance: SECUKINUMAB
     Indication: PSORIASIS
     Dosage: UNK
     Route: 065

REACTIONS (3)
  - Joint dislocation [Unknown]
  - Accident [Unknown]
  - Pain in extremity [Unknown]
